FAERS Safety Report 4706578-2 (Version None)
Quarter: 2005Q3

REPORT INFORMATION
  Report Type: 
  Country: None (occurrence: None)
  Receive Date: 20050705
  Receipt Date: 20050603
  Transmission Date: 20060218
  Serious: Yes (Disabling)
  Sender: FDA-Public Use
  Company Number: 2005SE03303

PATIENT
  Age: 3328 Day
  Sex: Female
  Weight: 30 kg

DRUGS (2)
  1. NEXIUM [Suspect]
     Indication: ABDOMINAL PAIN UPPER
     Route: 048
     Dates: start: 20040803, end: 20040816
  2. NSAID [Concomitant]

REACTIONS (6)
  - ABDOMINAL PAIN UPPER [None]
  - ACCOMMODATION DISORDER [None]
  - HEADACHE [None]
  - HYPERTROPHY BREAST [None]
  - NAUSEA [None]
  - PARAESTHESIA [None]
